FAERS Safety Report 4740887-6 (Version None)
Quarter: 2005Q3

REPORT INFORMATION
  Report Type: 
  Country: None (occurrence: None)
  Receive Date: 20050810
  Receipt Date: 20050516
  Transmission Date: 20060218
  Serious: No
  Sender: FDA-Public Use
  Company Number: US-GLAXOSMITHKLINE-A0558706A

PATIENT
  Age: 76 Year
  Sex: Male

DRUGS (1)
  1. TAGAMET HB 200 [Suspect]
     Dates: start: 20050427, end: 20050513

REACTIONS (5)
  - ANOREXIA [None]
  - FATIGUE [None]
  - LOCAL SWELLING [None]
  - SHOULDER PAIN [None]
  - WEIGHT DECREASED [None]
